FAERS Safety Report 9411920 (Version 1)
Quarter: 2013Q3

REPORT INFORMATION
  Report Type: Report from Study
  Country: US (occurrence: US)
  Receive Date: 20130722
  Receipt Date: 20130722
  Transmission Date: 20140515
  Serious: Yes (Other)
  Sender: FDA-Public Use
  Company Number: PHEH2013US015314

PATIENT
  Sex: Male
  Weight: 63.49 kg

DRUGS (4)
  1. ZOMETA [Suspect]
     Indication: PLASMA CELL MYELOMA
     Dosage: 1 DF, UNK
  2. NEURONTIN [Concomitant]
     Dosage: UNK UKN, UNK
  3. BACTRIM [Concomitant]
     Dosage: UNK UKN, UNK
  4. REVLIMID [Concomitant]
     Dosage: UNK UKN, UNK

REACTIONS (1)
  - Neuropathy peripheral [Unknown]
